FAERS Safety Report 24425788 (Version 5)
Quarter: 2025Q1

REPORT INFORMATION
  Report Type: Report from Study
  Country: JP (occurrence: JP)
  Receive Date: 20241011
  Receipt Date: 20250328
  Transmission Date: 20250408
  Serious: Yes (Death, Hospitalization)
  Sender: SHIONOGI
  Company Number: JP-shionogi-202400000913

PATIENT
  Age: 78 Year
  Sex: Male
  Weight: 54.3 kg

DRUGS (40)
  1. CEFIDEROCOL [Suspect]
     Active Substance: CEFIDEROCOL
     Indication: Pneumonia aspiration
     Route: 041
     Dates: start: 20240717, end: 20240717
  2. CEFIDEROCOL [Suspect]
     Active Substance: CEFIDEROCOL
     Indication: Cholangitis
     Dosage: 1 G/DOSE, 1.5 G/DOSE
     Route: 041
     Dates: start: 20240718, end: 20240718
  3. CEFIDEROCOL [Suspect]
     Active Substance: CEFIDEROCOL
     Indication: Sepsis
     Route: 041
     Dates: start: 20240719, end: 20240720
  4. CEFIDEROCOL [Suspect]
     Active Substance: CEFIDEROCOL
     Dosage: 1.5 G/DOSE, 1 G/DOSE X TWICE
     Route: 041
     Dates: start: 20240721, end: 20240721
  5. CEFIDEROCOL [Suspect]
     Active Substance: CEFIDEROCOL
     Route: 041
     Dates: start: 20240722, end: 20240723
  6. CEFIDEROCOL [Suspect]
     Active Substance: CEFIDEROCOL
     Dosage: 1 G/DOSE, 1.5 G/DOSE X TWICE
     Route: 041
     Dates: start: 20240724, end: 20240724
  7. CEFIDEROCOL [Suspect]
     Active Substance: CEFIDEROCOL
     Route: 041
     Dates: start: 20240725, end: 20240725
  8. CEFIDEROCOL [Suspect]
     Active Substance: CEFIDEROCOL
     Dosage: 1.5 G/DOSE, 1 G/DOSE X TWICE
     Route: 041
     Dates: start: 20240726, end: 20240726
  9. CEFIDEROCOL [Suspect]
     Active Substance: CEFIDEROCOL
     Route: 041
     Dates: start: 20240727, end: 20240804
  10. CEFIDEROCOL [Suspect]
     Active Substance: CEFIDEROCOL
     Dosage: 1.5 G/DOSE, 1 G/DOSE X TWICE
     Route: 041
     Dates: start: 20240805, end: 20240805
  11. CEFIDEROCOL [Suspect]
     Active Substance: CEFIDEROCOL
     Route: 041
     Dates: start: 20240806, end: 20240812
  12. CEFIDEROCOL [Suspect]
     Active Substance: CEFIDEROCOL
     Dosage: 1.5 G/DOSE X TWICE, 1 G/DOSE
     Route: 041
     Dates: start: 20240813, end: 20240813
  13. CEFIDEROCOL [Suspect]
     Active Substance: CEFIDEROCOL
     Route: 041
     Dates: start: 20240814, end: 20240814
  14. CEFIDEROCOL [Suspect]
     Active Substance: CEFIDEROCOL
     Dosage: RESUMED
     Route: 041
     Dates: start: 20240828, end: 20240829
  15. PREDONINE [Concomitant]
     Active Substance: PREDNISOLONE
     Indication: Hypotension
     Route: 065
     Dates: start: 20240826, end: 20240829
  16. TEICOPLANIN [Concomitant]
     Active Substance: TEICOPLANIN
     Indication: Pneumonia aspiration
     Route: 065
     Dates: start: 20240814, end: 20240829
  17. TEICOPLANIN [Concomitant]
     Active Substance: TEICOPLANIN
     Indication: Cholangitis
  18. TEICOPLANIN [Concomitant]
     Active Substance: TEICOPLANIN
     Indication: Sepsis
  19. CEFMETAZOLE SODIUM [Concomitant]
     Active Substance: CEFMETAZOLE SODIUM
     Indication: Pneumonia aspiration
     Route: 065
     Dates: start: 20240823, end: 20240828
  20. CEFMETAZOLE SODIUM [Concomitant]
     Active Substance: CEFMETAZOLE SODIUM
     Indication: Cholangitis
  21. CEFMETAZOLE SODIUM [Concomitant]
     Active Substance: CEFMETAZOLE SODIUM
     Indication: Sepsis
  22. AMIKACIN SULFATE [Concomitant]
     Active Substance: AMIKACIN SULFATE
     Indication: Pneumonia aspiration
     Route: 065
     Dates: start: 20240701, end: 20240716
  23. AMIKACIN SULFATE [Concomitant]
     Active Substance: AMIKACIN SULFATE
     Indication: Cholangitis
  24. AMIKACIN SULFATE [Concomitant]
     Active Substance: AMIKACIN SULFATE
     Indication: Sepsis
  25. VANCOMYCIN HYDROCHLORIDE [Concomitant]
     Active Substance: VANCOMYCIN HYDROCHLORIDE
     Indication: Pneumonia aspiration
     Route: 065
     Dates: start: 20240712, end: 20240717
  26. VANCOMYCIN HYDROCHLORIDE [Concomitant]
     Active Substance: VANCOMYCIN HYDROCHLORIDE
     Indication: Cholangitis
  27. VANCOMYCIN HYDROCHLORIDE [Concomitant]
     Active Substance: VANCOMYCIN HYDROCHLORIDE
     Indication: Sepsis
  28. SOLU-CORTEF [Concomitant]
     Active Substance: HYDROCORTISONE SODIUM SUCCINATE
     Indication: Pneumonia aspiration
     Route: 065
     Dates: start: 20240718, end: 20240719
  29. SOLU-CORTEF [Concomitant]
     Active Substance: HYDROCORTISONE SODIUM SUCCINATE
     Indication: Cholangitis
     Route: 065
     Dates: start: 20240818, end: 20240825
  30. SOLU-CORTEF [Concomitant]
     Active Substance: HYDROCORTISONE SODIUM SUCCINATE
     Indication: Sepsis
  31. SOLU-CORTEF [Concomitant]
     Active Substance: HYDROCORTISONE SODIUM SUCCINATE
     Indication: Hypotension
  32. ACOALAN [Concomitant]
     Indication: Disseminated intravascular coagulation
     Route: 065
     Dates: start: 20240816, end: 20240818
  33. ANTITHROMBIN III HUMAN [Concomitant]
     Active Substance: ANTITHROMBIN III HUMAN
     Indication: Disseminated intravascular coagulation
     Route: 065
     Dates: start: 20240720, end: 20240722
  34. THROMBOMODULIN ALFA [Concomitant]
     Active Substance: THROMBOMODULIN ALFA
     Indication: Disseminated intravascular coagulation
     Route: 065
     Dates: start: 20240720, end: 20240725
  35. METRONIDAZOLE [Concomitant]
     Active Substance: METRONIDAZOLE
     Indication: Pneumonia aspiration
     Route: 065
     Dates: start: 20240724, end: 20240814
  36. METRONIDAZOLE [Concomitant]
     Active Substance: METRONIDAZOLE
     Indication: Cholangitis
  37. METRONIDAZOLE [Concomitant]
     Active Substance: METRONIDAZOLE
     Indication: Sepsis
  38. VENOGLOBULIN IH [Concomitant]
     Active Substance: HUMAN IMMUNOGLOBULIN G
     Indication: Pneumonia aspiration
     Route: 065
     Dates: start: 20240718, end: 20240720
  39. VENOGLOBULIN IH [Concomitant]
     Active Substance: HUMAN IMMUNOGLOBULIN G
     Indication: Cholangitis
  40. VENOGLOBULIN IH [Concomitant]
     Active Substance: HUMAN IMMUNOGLOBULIN G
     Indication: Sepsis

REACTIONS (5)
  - Cholangitis [Fatal]
  - Renal impairment [Recovering/Resolving]
  - Disseminated intravascular coagulation [Recovering/Resolving]
  - Hypotension [Not Recovered/Not Resolved]
  - Disseminated intravascular coagulation [Not Recovered/Not Resolved]

NARRATIVE: CASE EVENT DATE: 20240718
